FAERS Safety Report 23611811 (Version 1)
Quarter: 2024Q1

REPORT INFORMATION
  Report Type: Spontaneous
  Country: IN (occurrence: IN)
  Receive Date: 20240308
  Receipt Date: 20240308
  Transmission Date: 20240409
  Serious: Yes (Other)
  Sender: FDA-Public Use
  Company Number: IN-AMICI-2024AMILIT00003

PATIENT
  Age: 18 Year
  Sex: Female

DRUGS (1)
  1. DICLOFENAC POTASSIUM [Suspect]
     Active Substance: DICLOFENAC POTASSIUM
     Indication: Toothache
     Route: 030

REACTIONS (2)
  - Embolia cutis medicamentosa [Recovered/Resolved]
  - Wrong technique in product usage process [Unknown]
